FAERS Safety Report 23210841 (Version 1)
Quarter: 2023Q4

REPORT INFORMATION
  Report Type: Spontaneous
  Country: US (occurrence: US)
  Receive Date: 20231121
  Receipt Date: 20231121
  Transmission Date: 20240110
  Serious: Yes (Death, Other)
  Sender: FDA-Public Use
  Company Number: US-AMGEN-USASP2023206287

PATIENT

DRUGS (2)
  1. BLINATUMOMAB [Suspect]
     Active Substance: BLINATUMOMAB
     Indication: Acute biphenotypic leukaemia
     Dosage: UNK
     Route: 065
  2. BLINATUMOMAB [Suspect]
     Active Substance: BLINATUMOMAB
     Indication: B-cell type acute leukaemia

REACTIONS (25)
  - Death [Fatal]
  - B-cell type acute leukaemia [Fatal]
  - Acute biphenotypic leukaemia [Fatal]
  - Thrombotic microangiopathy [Fatal]
  - Idiopathic pneumonia syndrome [Fatal]
  - Infection [Fatal]
  - Acute graft versus host disease [Unknown]
  - Chronic graft versus host disease [Unknown]
  - Delayed engraftment [Unknown]
  - Transplant failure [Unknown]
  - Transplant rejection [Unknown]
  - Hypogammaglobulinaemia [Unknown]
  - JC virus infection [Unknown]
  - Cytomegalovirus infection [Unknown]
  - Epstein-Barr virus infection [Unknown]
  - Adenovirus infection [Unknown]
  - Human herpesvirus 6 infection [Unknown]
  - BK virus infection [Unknown]
  - Herpes simplex [Unknown]
  - Respiratory tract infection viral [Unknown]
  - Post procedural infection [Unknown]
  - Venoocclusive disease [Unknown]
  - Bacterial infection [Unknown]
  - Viral infection [Unknown]
  - Fungal infection [Unknown]
